FAERS Safety Report 23968254 (Version 1)
Quarter: 2024Q2

REPORT INFORMATION
  Report Type: Spontaneous
  Country: US (occurrence: US)
  Receive Date: 20240612
  Receipt Date: 20240612
  Transmission Date: 20240715
  Serious: No
  Sender: FDA-Public Use
  Company Number: US-PERRIGO-24US001489

PATIENT
  Age: 58 Year
  Sex: Female
  Weight: 68.027 kg

DRUGS (3)
  1. DICLOFENAC SODIUM [Suspect]
     Active Substance: DICLOFENAC\DICLOFENAC SODIUM
     Indication: Arthralgia
     Dosage: UNKNOWN, Q 3 WEEKS PRN
     Route: 061
     Dates: start: 20231209
  2. DICLOFENAC SODIUM [Suspect]
     Active Substance: DICLOFENAC\DICLOFENAC SODIUM
     Indication: Wrong product administered
     Dosage: UNKNOWN, SINGLE
     Route: 067
     Dates: start: 20240208, end: 20240208
  3. LEVOTHYROXINE [Concomitant]
     Active Substance: LEVOTHYROXINE\LEVOTHYROXINE SODIUM
     Indication: Thyroid disorder
     Dosage: UNK
     Route: 065
     Dates: start: 2004

REACTIONS (5)
  - Vulvovaginal burning sensation [Recovered/Resolved]
  - Product administered at inappropriate site [Unknown]
  - Wrong product administered [Unknown]
  - Wrong technique in product usage process [Unknown]
  - Underdose [Unknown]

NARRATIVE: CASE EVENT DATE: 20231209
